FAERS Safety Report 18430018 (Version 3)
Quarter: 2020Q4

REPORT INFORMATION
  Report Type: Spontaneous
  Country: CO (occurrence: CO)
  Receive Date: 20201027
  Receipt Date: 20201109
  Transmission Date: 20210114
  Serious: Yes (Other)
  Sender: FDA-Public Use
  Company Number: CO-ROCHE-2699002

PATIENT
  Sex: Female
  Weight: 90 kg

DRUGS (3)
  1. FLUOXETINE [Concomitant]
     Active Substance: FLUOXETINE HYDROCHLORIDE
  2. RIVOTRIL [Suspect]
     Active Substance: CLONAZEPAM
     Indication: DEPRESSION
     Dosage: 3 DROOPS AM, 3 DROPS MID DAY, 9 DROPS FOR SLEEP
     Route: 048
     Dates: start: 20201008
  3. LEVOTHYROXINE. [Concomitant]
     Active Substance: LEVOTHYROXINE
     Indication: HYPOTHYROIDISM
     Route: 048

REACTIONS (7)
  - Chest pain [Unknown]
  - Anxiety [Unknown]
  - Depression [Unknown]
  - Aggression [Unknown]
  - Insomnia [Unknown]
  - Drug ineffective [Unknown]
  - Product packaging issue [Unknown]
